FAERS Safety Report 22389410 (Version 1)
Quarter: 2023Q2

REPORT INFORMATION
  Report Type: Spontaneous
  Country: US (occurrence: None)
  Receive Date: 20230530
  Receipt Date: 20230530
  Transmission Date: 20230722
  Serious: Yes (Other)
  Sender: FDA-Public Use
  Company Number: None

PATIENT
  Age: 42 Year
  Sex: Female
  Weight: 76.5 kg

DRUGS (1)
  1. BUPRENORPHINE HYDROCHLORIDE\NALOXONE [Suspect]
     Active Substance: BUPRENORPHINE HYDROCHLORIDE\NALOXONE
     Indication: Dependence
     Dosage: OTHER QUANTITY : 56 TABLET(S);?FREQUENCY : TWICE A DAY;?
     Route: 060

REACTIONS (5)
  - Dental caries [None]
  - Tooth erosion [None]
  - Tooth fracture [None]
  - Dental restoration failure [None]
  - Tooth extraction [None]

NARRATIVE: CASE EVENT DATE: 20220101
